FAERS Safety Report 9842406 (Version 3)
Quarter: 2015Q3

REPORT INFORMATION
  Report Type: Spontaneous
  Country: US (occurrence: US)
  Receive Date: 20140124
  Receipt Date: 20150730
  Transmission Date: 20151125
  Serious: Yes (Hospitalization)
  Sender: FDA-Public Use
  Company Number: US-GILEAD-2011-0037574

PATIENT
  Age: 59 Year
  Sex: Female

DRUGS (21)
  1. RANEXA [Suspect]
     Active Substance: RANOLAZINE
     Indication: ANGINA PECTORIS
     Route: 048
     Dates: start: 20110217
  2. ASA [Concomitant]
     Active Substance: ASPIRIN
  3. NORVASC [Concomitant]
     Active Substance: AMLODIPINE BESYLATE
  4. LASIX [Concomitant]
     Active Substance: FUROSEMIDE
  5. PROTONIX [Concomitant]
     Active Substance: PANTOPRAZOLE SODIUM
  6. NTG [Concomitant]
     Active Substance: NITROGLYCERIN
  7. METOPROLOL [Concomitant]
     Active Substance: METOPROLOL
  8. PARACETAMOL/HYDROCODONE BITARTRATE [Concomitant]
  9. NOVOLOG [Concomitant]
     Active Substance: INSULIN ASPART
  10. ELAVIL [Concomitant]
     Active Substance: AMITRIPTYLINE HYDROCHLORIDE
  11. SENOKOT [Concomitant]
     Active Substance: SENNOSIDES
  12. CIPRO [Concomitant]
     Active Substance: CIPROFLOXACIN HYDROCHLORIDE
  13. NEURONTIN [Concomitant]
     Active Substance: GABAPENTIN
  14. ZOCOR [Concomitant]
     Active Substance: SIMVASTATIN
  15. LANTUS [Concomitant]
     Active Substance: INSULIN GLARGINE
  16. PREDNISONE. [Concomitant]
     Active Substance: PREDNISONE
  17. VENTOLIN [Concomitant]
     Active Substance: ALBUTEROL SULFATE
  18. ADVAIR HFA [Concomitant]
     Active Substance: FLUTICASONE PROPIONATE\SALMETEROL XINAFOATE
  19. PLAVIX [Concomitant]
     Active Substance: CLOPIDOGREL BISULFATE
  20. TRAMADOL. [Concomitant]
     Active Substance: TRAMADOL
  21. IMDUR [Concomitant]
     Active Substance: ISOSORBIDE MONONITRATE

REACTIONS (1)
  - Acute kidney injury [Recovered/Resolved]

NARRATIVE: CASE EVENT DATE: 20110221
